FAERS Safety Report 21482133 (Version 2)
Quarter: 2022Q4

REPORT INFORMATION
  Report Type: Spontaneous
  Country: US (occurrence: US)
  Receive Date: 20221020
  Receipt Date: 20221109
  Transmission Date: 20230113
  Serious: No
  Sender: FDA-Public Use
  Company Number: US-UNITED THERAPEUTICS-UNT-2022-024425

PATIENT
  Age: 43 Year
  Sex: Male

DRUGS (2)
  1. REMODULIN [Suspect]
     Active Substance: TREPROSTINIL
     Indication: Pulmonary arterial hypertension
     Dosage: UNK, CONTINUING
     Route: 058
     Dates: start: 20210921
  2. REMODULIN [Suspect]
     Active Substance: TREPROSTINIL
     Dosage: 0.0995 ?G/KG, CONTINUING
     Route: 058

REACTIONS (3)
  - Infusion site extravasation [Recovered/Resolved]
  - Device maintenance issue [Unknown]
  - Infusion site pain [Unknown]

NARRATIVE: CASE EVENT DATE: 20221013
